FAERS Safety Report 9414392 (Version 1)
Quarter: 2013Q3

REPORT INFORMATION
  Report Type: Spontaneous
  Country: CN (occurrence: CN)
  Receive Date: 20130723
  Receipt Date: 20130723
  Transmission Date: 20140515
  Serious: Yes (Other)
  Sender: FDA-Public Use
  Company Number: CN-ASTELLAS-2013JP007764

PATIENT
  Age: 72 Year
  Sex: Female

DRUGS (2)
  1. MYCAMINE [Suspect]
     Indication: PYREXIA
     Dosage: 100 MG, UID/QD
     Route: 042
     Dates: start: 20130714, end: 20130714
  2. MAXIPIME [Concomitant]
     Route: 065

REACTIONS (5)
  - Off label use [Recovered/Resolved]
  - Syncope [Not Recovered/Not Resolved]
  - Renal impairment [Not Recovered/Not Resolved]
  - Chills [Not Recovered/Not Resolved]
  - Haemolytic uraemic syndrome [Not Recovered/Not Resolved]
